FAERS Safety Report 14128543 (Version 1)
Quarter: 2017Q4

REPORT INFORMATION
  Report Type: Spontaneous
  Country: US (occurrence: US)
  Receive Date: 20171026
  Receipt Date: 20171026
  Transmission Date: 20180321
  Serious: Yes (Other)
  Sender: FDA-Public Use
  Company Number: None

PATIENT
  Sex: Male
  Weight: 143.1 kg

DRUGS (7)
  1. DOXAZOSIN [Concomitant]
     Active Substance: DOXAZOSIN\DOXAZOSIN MESYLATE
  2. CELEBREX [Concomitant]
     Active Substance: CELECOXIB
  3. ALLOPURINOL. [Concomitant]
     Active Substance: ALLOPURINOL
  4. IRBESARTAN. [Concomitant]
     Active Substance: IRBESARTAN
  5. PRAVASTATIN. [Concomitant]
     Active Substance: PRAVASTATIN
  6. CAPECITABINE. [Suspect]
     Active Substance: CAPECITABINE
     Indication: COLON CANCER
     Route: 048
     Dates: start: 20170901
  7. HYDROCO DONE-ACETAMINOPHEN [Concomitant]

REACTIONS (2)
  - Diarrhoea [None]
  - Renal impairment [None]
